FAERS Safety Report 4393097-9 (Version None)
Quarter: 2004Q3

REPORT INFORMATION
  Report Type: 
  Country: None (occurrence: None)
  Receive Date: 20040708
  Receipt Date: 20040628
  Transmission Date: 20050211
  Serious: Yes (Hospitalization)
  Sender: FDA-Public Use
  Company Number: JP-BRISTOL-MYERS SQUIBB COMPANY-12631503

PATIENT
  Age: 79 Year
  Sex: Female

DRUGS (5)
  1. GATIFLO [Suspect]
     Indication: BRONCHITIS CHRONIC
     Dosage: GIVEN FROM 01-SEP TO 05-SEP-2003 AND 08-SEP TO 11-SEP-2003
     Route: 048
     Dates: start: 20030901, end: 20030911
  2. LASIX [Concomitant]
     Route: 048
     Dates: start: 20030606
  3. FERROMIA [Concomitant]
     Route: 048
     Dates: start: 20030620
  4. RINDERON [Concomitant]
     Route: 048
     Dates: start: 20030620
  5. CARBOCYSTEINE [Concomitant]
     Route: 048
     Dates: start: 20030620

REACTIONS (2)
  - DIABETIC HYPEROSMOLAR COMA [None]
  - HEPATIC FUNCTION ABNORMAL [None]
